FAERS Safety Report 22364953 (Version 5)
Quarter: 2024Q3

REPORT INFORMATION
  Report Type: Report from Study
  Country: US (occurrence: US)
  Receive Date: 20230525
  Receipt Date: 20240823
  Transmission Date: 20241017
  Serious: No
  Sender: NOVARTIS
  Company Number: US-002147023-NVSC2023US116031

PATIENT
  Sex: Female

DRUGS (2)
  1. KESIMPTA [Suspect]
     Active Substance: OFATUMUMAB
     Indication: Product used for unknown indication
     Dosage: UNK
     Route: 065
     Dates: start: 20220422
  2. KESIMPTA [Suspect]
     Active Substance: OFATUMUMAB
     Dosage: UNK
     Route: 065
     Dates: start: 20230919

REACTIONS (6)
  - Arthralgia [Unknown]
  - Stress [Unknown]
  - Inappropriate schedule of product administration [Unknown]
  - Depressed mood [Unknown]
  - Electric shock sensation [Unknown]
  - Spinal disorder [Unknown]
